FAERS Safety Report 5083496-4 (Version None)
Quarter: 2006Q3

REPORT INFORMATION
  Report Type: 
  Country: None (occurrence: None)
  Receive Date: 20060818
  Receipt Date: 20060808
  Transmission Date: 20061208
  Serious: Yes (Hospitalization)
  Sender: FDA-Public Use
  Company Number: US-JNJFOC-20060802245

PATIENT
  Sex: Female
  Weight: 53.07 kg

DRUGS (9)
  1. FENTANYL TRANSDERMAL SYSTEM [Suspect]
     Indication: SPINAL FRACTURE
     Route: 062
  2. NEURONTIN [Concomitant]
     Indication: NEUROPATHY
     Route: 048
  3. PROTONIX [Concomitant]
     Indication: GASTROOESOPHAGEAL REFLUX DISEASE
     Route: 048
  4. ATENOLOL [Concomitant]
     Indication: BLOOD PRESSURE
     Route: 048
  5. PLETAL [Concomitant]
     Indication: PERIPHERAL VASCULAR DISORDER
     Route: 048
  6. SPIREVA [Concomitant]
     Indication: CHRONIC OBSTRUCTIVE PULMONARY DISEASE
     Route: 048
  7. XOPENEX [Concomitant]
     Indication: CHRONIC OBSTRUCTIVE PULMONARY DISEASE
     Route: 055
  8. TEMAZEPAM [Concomitant]
     Indication: SLEEP DISORDER
     Dosage: TAKEN AT BEDTIME
     Route: 048
  9. ALBUTEROL [Concomitant]
     Indication: CHRONIC OBSTRUCTIVE PULMONARY DISEASE
     Route: 055

REACTIONS (5)
  - FEELING ABNORMAL [None]
  - FEELING HOT AND COLD [None]
  - HYPERHIDROSIS [None]
  - PNEUMONIA [None]
  - RESTLESSNESS [None]
